FAERS Safety Report 19785836 (Version 1)
Quarter: 2021Q3

REPORT INFORMATION
  Report Type: Report from Study
  Country: US (occurrence: US)
  Receive Date: 20210903
  Receipt Date: 20210903
  Transmission Date: 20211014
  Serious: Yes (Other)
  Sender: FDA-Public Use
  Company Number: US-BRISTOL-MYERS SQUIBB COMPANY-BMS-2021-084892

PATIENT
  Age: 54 Year
  Sex: Female

DRUGS (6)
  1. PEPCID [Concomitant]
     Active Substance: FAMOTIDINE
     Indication: PROPHYLAXIS
     Dosage: 40 MILLIGRAM, QHS
     Route: 065
  2. PROTONIX [OMEPRAZOLE] [Concomitant]
     Active Substance: OMEPRAZOLE
     Indication: PROPHYLAXIS
     Dosage: 40 MILLIGRAM, QD
     Route: 065
  3. CARAFATE [Concomitant]
     Active Substance: SUCRALFATE
     Indication: PROPHYLAXIS
     Dosage: 500 MG UP TO 4X/DAY PMN
     Route: 065
  4. TUMS GAS RELIEF [Concomitant]
     Indication: PROPHYLAXIS
     Dosage: PRN
     Route: 065
  5. BACLOFEN. [Concomitant]
     Active Substance: BACLOFEN
     Indication: PROPHYLAXIS
     Dosage: 10 MILLIGRAM, QHS
     Route: 065
  6. NIVOLUMAB [Suspect]
     Active Substance: NIVOLUMAB
     Indication: METASTATIC MALIGNANT MELANOMA
     Dosage: UNK
     Route: 065

REACTIONS (26)
  - Fatigue [Unknown]
  - Skin exfoliation [Unknown]
  - Dry eye [Unknown]
  - Dry mouth [Unknown]
  - Somnolence [Unknown]
  - Feeling abnormal [Unknown]
  - Ankle fracture [Unknown]
  - Loss of consciousness [Unknown]
  - Joint swelling [Unknown]
  - Thinking abnormal [Unknown]
  - Dry skin [Unknown]
  - Fall [Unknown]
  - Night sweats [Unknown]
  - Bowel movement irregularity [Unknown]
  - Pruritus [Unknown]
  - Heart rate increased [Unknown]
  - Neck pain [Unknown]
  - Head injury [Unknown]
  - Visual impairment [Unknown]
  - Dizziness [Unknown]
  - Abnormal dreams [Unknown]
  - Alopecia [Unknown]
  - Vomiting [Not Recovered/Not Resolved]
  - Diarrhoea [Unknown]
  - Rash [Unknown]
  - Blood pressure abnormal [Unknown]

NARRATIVE: CASE EVENT DATE: 202106
